FAERS Safety Report 5396831-4 (Version None)
Quarter: 2007Q3

REPORT INFORMATION
  Report Type: 
  Country: None (occurrence: None)
  Receive Date: 20070725
  Receipt Date: 20060929
  Transmission Date: 20080115
  Serious: No
  Sender: FDA-Public Use
  Company Number: US-AMGEN-KDL195508

PATIENT
  Sex: Female

DRUGS (19)
  1. PROCRIT [Suspect]
     Indication: PREOPERATIVE CARE
     Dates: start: 20060927
  2. HYDRALAZINE HYDROCHLORIDE [Concomitant]
  3. DETROL [Concomitant]
  4. PLAVIX [Concomitant]
  5. ASPIRIN [Concomitant]
  6. LASIX [Concomitant]
  7. COREG [Concomitant]
  8. WELLBUTRIN [Concomitant]
  9. VICODIN [Concomitant]
  10. KLOR-CON [Concomitant]
  11. STOOL SOFTENER [Concomitant]
  12. ADVAIR DISKUS 100/50 [Concomitant]
     Route: 045
  13. OXYGEN [Concomitant]
  14. QUININE [Concomitant]
  15. SINGULAIR [Concomitant]
  16. PREVACID [Concomitant]
  17. LEXAPRO [Concomitant]
  18. WARFARIN SODIUM [Concomitant]
  19. SPIRONOLACTONE [Concomitant]

REACTIONS (2)
  - ASTHENIA [None]
  - HYPERSOMNIA [None]
